FAERS Safety Report 8476307-8 (Version None)
Quarter: 2012Q2

REPORT INFORMATION
  Report Type: 
  Country: None (occurrence: None)
  Receive Date: 20120619
  Receipt Date: 20120611
  Transmission Date: 20120825
  Serious: Yes (Other)
  Sender: FDA-Public Use
  Company Number: 2012SP020214

PATIENT
  Age: 14 Year
  Sex: Male

DRUGS (7)
  1. ETOPOSIDE [Suspect]
     Indication: MEDULLOBLASTOMA
  2. VINCRISTINE [Suspect]
     Indication: MEDULLOBLASTOMA
     Dosage: QW;
  3. TEMOZOLOMIDE [Suspect]
     Indication: MEDULLOBLASTOMA
  4. LOMUSTINE (LOMUSTINE) [Suspect]
     Indication: MEDULLOBLASTOMA
  5. CARBOPLATIN [Suspect]
     Indication: MEDULLOBLASTOMA
  6. CISPLATIN [Suspect]
     Indication: MEDULLOBLASTOMA
     Dosage: UNK;UNK
  7. CYCLOPHOSPHAMIDE [Suspect]
     Indication: MEDULLOBLASTOMA

REACTIONS (7)
  - DYSARTHRIA [None]
  - ATAXIA [None]
  - HYPOTHYROIDISM [None]
  - COGNITIVE DISORDER [None]
  - NEUROTOXICITY [None]
  - VISUAL IMPAIRMENT [None]
  - COORDINATION ABNORMAL [None]
